FAERS Safety Report 9513786 (Version 1)
Quarter: 2013Q1

REPORT INFORMATION
  Report Type: Spontaneous
  Country: US (occurrence: None)
  Receive Date: 20130305
  Receipt Date: 20130305
  Transmission Date: 20140127
  Serious: Yes (Other)
  Sender: FDA-Public Use
  Company Number: 163-21880-12102605

PATIENT
  Age: 74 Year
  Sex: Female
  Weight: 46.27 kg

DRUGS (2)
  1. REVLIMID (LENALIDOMIDE) (10 MLLIGRAM, CAPSULES) [Suspect]
     Indication: MYELODYSPLASTIC SYNDROME
     Dosage: 10 MG, 1 IN 1 D, PO
     Route: 048
     Dates: start: 20090521, end: 2011
  2. DARBEPOETIN (DARBEPOETIN ALFA) (INJECTION)? [Concomitant]

REACTIONS (1)
  - Pancytopenia [None]
